FAERS Safety Report 7748954-X (Version None)
Quarter: 2011Q3

REPORT INFORMATION
  Report Type: 
  Country: None (occurrence: None)
  Receive Date: 20110914
  Receipt Date: 20110906
  Transmission Date: 20111222
  Serious: Yes (Other)
  Sender: FDA-Public Use
  Company Number: US-BAYER-2011-083267

PATIENT
  Sex: Female

DRUGS (1)
  1. YASMIN [Suspect]
     Dosage: UNK
     Dates: start: 20020601

REACTIONS (7)
  - CHOLANGITIS [None]
  - GALLBLADDER INJURY [None]
  - PAIN [None]
  - HAEMATOMA [None]
  - MYOCARDIAL INFARCTION [None]
  - BILE DUCT STENOSIS [None]
  - INJURY [None]
